FAERS Safety Report 6108622-7 (Version None)
Quarter: 2009Q1

REPORT INFORMATION
  Report Type: 
  Country: None (occurrence: None)
  Receive Date: 20090305
  Receipt Date: 20090223
  Transmission Date: 20090719
  Serious: Yes (Disabling)
  Sender: FDA-Public Use
  Company Number: OSCN-NO-0902S-0116

PATIENT
  Age: 58 Year
  Sex: Male

DRUGS (13)
  1. OMNISCAN [Suspect]
     Indication: DRUG USE FOR UNKNOWN INDICATION
     Dosage: 40 ML, SINGLE DOSE, I.V.
     Route: 042
     Dates: start: 20050314, end: 20050314
  2. GADOPENTETATE DIMEGLUMINE (MAGNEVIST) [Concomitant]
  3. CALCIUM ACETATE (PHOS-EX) [Concomitant]
  4. PREDNISOLONE [Concomitant]
  5. METROPOLOL SUCCINATE (SELO-ZOK) [Concomitant]
  6. PANTOPRAZOLE SODIUM [Concomitant]
  7. SODIUM POLYSTRENE SULFONATE (RESONIUM) [Concomitant]
  8. RENAGEL [Concomitant]
  9. ACETYLSALICYLIC ACID (MAGNYL) [Concomitant]
  10. SACCHARATED IRON OXID (VENOFER) [Concomitant]
  11. ZOCOR [Concomitant]
  12. ERYTHROPOIETIN (NEORECORMON) [Concomitant]
  13. CITALOPRAM HYDROBROMIDE [Concomitant]

REACTIONS (5)
  - CONNECTIVE TISSUE DISORDER [None]
  - MUSCLE ATROPHY [None]
  - NEPHROGENIC SYSTEMIC FIBROSIS [None]
  - PULMONARY HYPERTENSION [None]
  - SPINAL COLUMN STENOSIS [None]
